FAERS Safety Report 20843878 (Version 1)
Quarter: 2022Q2

REPORT INFORMATION
  Report Type: Spontaneous
  Country: US (occurrence: None)
  Receive Date: 20220517
  Receipt Date: 20220517
  Transmission Date: 20220721
  Serious: No
  Sender: FDA-Public Use
  Company Number: None

PATIENT
  Age: 74 Year
  Sex: Male
  Weight: 96.62 kg

DRUGS (15)
  1. CYCLOPHOSPHAMIDE [Suspect]
     Active Substance: CYCLOPHOSPHAMIDE
     Dosage: FREQUENCY : DAILY;?
     Route: 048
  2. BUPROPION [Concomitant]
  3. COENZYME [Concomitant]
  4. DAILY MULTIVITAMIN [Concomitant]
  5. DICYCLOMINE [Concomitant]
  6. FOLIC ACID [Concomitant]
  7. GLUCERNA [Concomitant]
  8. LEXAPRO [Concomitant]
  9. MIRTAZAPINE [Concomitant]
  10. PROCHLORPERAZINE [Concomitant]
  11. PROVENTIL [Concomitant]
  12. TAMSULOSIN [Concomitant]
  13. VITAMIN B-12 [Concomitant]
  14. VITAMIN C [Concomitant]
  15. ZOFRAN [Concomitant]

REACTIONS (2)
  - Heart rate increased [None]
  - Hypotension [None]
